FAERS Safety Report 4704348-2 (Version None)
Quarter: 2005Q2

REPORT INFORMATION
  Report Type: 
  Country: None (occurrence: None)
  Receive Date: 20050630
  Receipt Date: 20050622
  Transmission Date: 20051028
  Serious: Yes (Hospitalization)
  Sender: FDA-Public Use
  Company Number: US-JNJFOC-20050505058

PATIENT
  Sex: Female

DRUGS (20)
  1. INFLIXIMAB [Suspect]
     Indication: RHEUMATOID ARTHRITIS
     Route: 042
  2. ASPIRIN [Concomitant]
  3. COZAAR [Concomitant]
  4. DEMADEX [Concomitant]
  5. LEUCOVORIN [Concomitant]
  6. METHOTREXATE [Concomitant]
  7. OS-CAL [Concomitant]
  8. OS-CAL [Concomitant]
  9. PREDNISONE [Concomitant]
  10. SYNTHROID [Concomitant]
  11. WYGESIC [Concomitant]
  12. WYGESIC [Concomitant]
  13. PROCRIT [Concomitant]
  14. ACTOS [Concomitant]
  15. STARLIX [Concomitant]
  16. LUMIGAN [Concomitant]
  17. LIPITOR [Concomitant]
  18. ACTONEL [Concomitant]
  19. THERAGRAN M [Concomitant]
  20. THERAGRAN M [Concomitant]

REACTIONS (4)
  - GASTRITIS [None]
  - HAEMORRHOIDS [None]
  - HIATUS HERNIA [None]
  - PNEUMONIA [None]
